FAERS Safety Report 18237423 (Version 1)
Quarter: 2020Q3

REPORT INFORMATION
  Report Type: Report from Study
  Country: BE (occurrence: BE)
  Receive Date: 20200907
  Receipt Date: 20200907
  Transmission Date: 20201103
  Serious: Yes (Life-Threatening, Hospitalization)
  Sender: FDA-Public Use
  Company Number: BE-TEVA-2020-BE-1824882

PATIENT
  Age: 7 Decade
  Sex: Male

DRUGS (2)
  1. EVEROLIMUS. [Suspect]
     Active Substance: EVEROLIMUS
     Indication: IMMUNOSUPPRESSANT DRUG THERAPY
     Route: 065
  2. MYCOPHENOLATE [Suspect]
     Active Substance: MYCOPHENOLIC ACID
     Indication: IMMUNOSUPPRESSANT DRUG THERAPY
     Dosage: 1 GRAM DAILY;
     Route: 065

REACTIONS (6)
  - Neurological decompensation [Recovered/Resolved]
  - Bacterial infection [Unknown]
  - Hypercapnia [Recovered/Resolved]
  - COVID-19 [Recovered/Resolved]
  - Confusional state [Recovered/Resolved]
  - Pneumonia [Unknown]
